FAERS Safety Report 6831704-9 (Version None)
Quarter: 2010Q2

REPORT INFORMATION
  Report Type: 
  Country: None (occurrence: None)
  Receive Date: 20100520
  Receipt Date: 20090604
  Transmission Date: 20101027
  Serious: Yes (Other)
  Sender: FDA-Public Use
  Company Number: 2009223044

PATIENT
  Age: 54 Year
  Sex: Female
  Weight: 75 kg

DRUGS (6)
  1. MEDROXYPROGESTERONE ACETATE [Suspect]
     Indication: HORMONE REPLACEMENT THERAPY
     Dosage: ORAL
     Route: 048
  2. PREMPRO [Suspect]
     Indication: HORMONE REPLACEMENT THERAPY
     Dosage: ORAL
     Route: 048
  3. PREMARIN [Suspect]
     Indication: HORMONE REPLACEMENT THERAPY
     Dosage: ORAL
     Route: 048
  4. VIVELLE [Suspect]
     Indication: HORMONE REPLACEMENT THERAPY
     Dates: end: 19990101
  5. AZMACORT [Concomitant]
  6. CLARITIN [Concomitant]

REACTIONS (1)
  - BREAST CANCER FEMALE [None]
